FAERS Safety Report 23736867 (Version 1)
Quarter: 2024Q2

REPORT INFORMATION
  Report Type: Spontaneous
  Country: IN (occurrence: IN)
  Receive Date: 20240412
  Receipt Date: 20240412
  Transmission Date: 20240715
  Serious: Yes (Death, Hospitalization, Other)
  Sender: FDA-Public Use
  Company Number: IN-SUN PHARMACEUTICAL INDUSTRIES LTD-2024R1-440783

PATIENT
  Age: 47 Year
  Sex: Male

DRUGS (4)
  1. KETOCONAZOLE [Interacting]
     Active Substance: KETOCONAZOLE
     Indication: Carcinoid tumour
     Dosage: 1200 MILLIGRAM, DAILY
     Route: 065
  2. SPIRONOLACTONE [Suspect]
     Active Substance: SPIRONOLACTONE
     Indication: Carcinoid tumour
     Dosage: 200 MILLIGRAM, DAILY
     Route: 065
  3. POTASSIUM [Suspect]
     Active Substance: POTASSIUM
     Indication: Carcinoid tumour
     Route: 065
  4. ISOFLURANE [Interacting]
     Active Substance: ISOFLURANE
     Indication: General anaesthesia
     Route: 065

REACTIONS (5)
  - Hepatotoxicity [Fatal]
  - Acute hepatic failure [Fatal]
  - Haemorrhagic diathesis [Fatal]
  - Depressed level of consciousness [Fatal]
  - Drug interaction [Fatal]
